FAERS Safety Report 11376283 (Version 3)
Quarter: 2015Q3

REPORT INFORMATION
  Report Type: Spontaneous
  Country: US (occurrence: US)
  Receive Date: 20150813
  Receipt Date: 20150929
  Transmission Date: 20151125
  Serious: No
  Sender: FDA-Public Use
  Company Number: US-PFIZER INC-2015266997

PATIENT
  Age: 46 Year
  Sex: Female
  Weight: 68 kg

DRUGS (3)
  1. PREMARIN [Suspect]
     Active Substance: ESTROGENS, CONJUGATED
     Dosage: SMALL AMOUNT, 4 TIME A WEEK
  2. PREMARIN [Suspect]
     Active Substance: ESTROGENS, CONJUGATED
     Indication: VAGINAL DISORDER
     Dosage: 0.625 MG, EVERY OTHER DAY
     Dates: start: 201012
  3. LEVOTHYROXINE. [Concomitant]
     Active Substance: LEVOTHYROXINE
     Indication: THYROID DISORDER
     Dosage: UNK
     Dates: start: 19940420

REACTIONS (4)
  - Insomnia [Unknown]
  - Irritability [Unknown]
  - Abdominal distension [Unknown]
  - Drug ineffective [Unknown]
